FAERS Safety Report 10241445 (Version 1)
Quarter: 2014Q2

REPORT INFORMATION
  Report Type: Spontaneous
  Country: US (occurrence: US)
  Receive Date: 20140617
  Receipt Date: 20140617
  Transmission Date: 20141212
  Serious: Yes (Other)
  Sender: FDA-Public Use
  Company Number: US-ASTRAZENECA-2014SE40334

PATIENT
  Sex: Male

DRUGS (5)
  1. SEROQUEL XR [Suspect]
     Indication: SCHIZOAFFECTIVE DISORDER
     Route: 048
  2. SEROQUEL XR [Suspect]
     Indication: SCHIZOAFFECTIVE DISORDER
     Dosage: GENERIC
     Route: 065
  3. SEROQUEL XR [Suspect]
     Indication: SCHIZOAFFECTIVE DISORDER
     Dosage: GENERIC
     Route: 065
  4. SEROQUEL XR [Suspect]
     Indication: SCHIZOAFFECTIVE DISORDER
     Dosage: GENERIC
     Route: 065
  5. SEROQUEL XR [Suspect]
     Indication: SCHIZOAFFECTIVE DISORDER
     Dosage: GENERIC
     Route: 065

REACTIONS (3)
  - Hypersomnia [Unknown]
  - Drug effect increased [Unknown]
  - Therapeutic response changed [Unknown]
